FAERS Safety Report 13074607 (Version 1)
Quarter: 2016Q4

REPORT INFORMATION
  Report Type: Spontaneous
  Country: NL (occurrence: NL)
  Receive Date: 20161230
  Receipt Date: 20161230
  Transmission Date: 20170207
  Serious: Yes (Other)
  Sender: FDA-Public Use
  Company Number: NL-TEVA-717374ACC

PATIENT
  Age: 48 Year
  Sex: Male
  Weight: 85 kg

DRUGS (2)
  1. LISINOPRIL TABLET  5MG [Concomitant]
     Dosage: 5 MILLIGRAM DAILY; 1 TIME PER DAY 1 PIECE(S)
     Route: 048
     Dates: start: 20160701, end: 20161101
  2. HYDROCHLOROTHIAZIDE TABLET 25MG [Suspect]
     Active Substance: HYDROCHLOROTHIAZIDE
     Indication: PRODUCT USED FOR UNKNOWN INDICATION
     Dosage: 25 MILLIGRAM DAILY; 1 TIME PER DAY 1 PIECE(S)
     Route: 048
     Dates: start: 20160701, end: 20161101

REACTIONS (1)
  - Arrhythmia [Recovered/Resolved]

NARRATIVE: CASE EVENT DATE: 20160901
